FAERS Safety Report 4488040-8 (Version None)
Quarter: 2004Q4

REPORT INFORMATION
  Report Type: 
  Country: None (occurrence: None)
  Receive Date: 20041028
  Receipt Date: 20040726
  Transmission Date: 20050328
  Serious: Yes (Other)
  Sender: FDA-Public Use
  Company Number: US-GLAXOSMITHKLINE-A0519714A

PATIENT
  Sex: Female

DRUGS (2)
  1. PAROXETINE [Suspect]
     Indication: DEPRESSION
     Route: 048
     Dates: start: 20040712
  2. NO CONCURRENT MEDICATION [Concomitant]

REACTIONS (3)
  - FEELING ABNORMAL [None]
  - HYPERSENSITIVITY [None]
  - HYPOGLYCAEMIA [None]
